FAERS Safety Report 19275030 (Version 5)
Quarter: 2021Q4

REPORT INFORMATION
  Report Type: Report from Study
  Country: CO (occurrence: CO)
  Receive Date: 20210519
  Receipt Date: 20211113
  Transmission Date: 20220303
  Serious: Yes (Death, Other)
  Sender: FDA-Public Use
  Company Number: NVSC2020CO253944

PATIENT
  Age: 72 Year
  Sex: Female

DRUGS (7)
  1. KISQALI [Suspect]
     Active Substance: RIBOCICLIB
     Indication: Breast cancer metastatic
     Dosage: 600 MG, QD (3 TABLETS)
     Route: 048
     Dates: start: 20200811
  2. KISQALI [Suspect]
     Active Substance: RIBOCICLIB
     Dosage: 400 MG, QD
     Route: 048
  3. KISQALI [Suspect]
     Active Substance: RIBOCICLIB
     Dosage: 400 MG (2X200 MG (2 TABLETS))
     Route: 048
  4. KISQALI [Suspect]
     Active Substance: RIBOCICLIB
     Dosage: 3 DF, QD
     Route: 048
  5. KISQALI [Suspect]
     Active Substance: RIBOCICLIB
     Dosage: 2 DF, QD
     Route: 048
  6. FULVESTRANT [Suspect]
     Active Substance: FULVESTRANT
     Indication: Breast cancer
     Dosage: UNK, Q2W (EVERY 15 DAYS)
     Route: 030
     Dates: start: 20200811
  7. LOSARTAN [Suspect]
     Active Substance: LOSARTAN
     Indication: Tension
     Dosage: UNK, QD
     Route: 048

REACTIONS (21)
  - Death [Fatal]
  - Alcohol poisoning [Recovered/Resolved]
  - Pain in extremity [Recovered/Resolved]
  - Gastritis [Recovered/Resolved]
  - Gastritis [Unknown]
  - Feeling abnormal [Unknown]
  - Nerve injury [Unknown]
  - Stress [Unknown]
  - Crying [Unknown]
  - Nausea [Recovered/Resolved]
  - Decreased appetite [Recovered/Resolved]
  - Dyspepsia [Recovering/Resolving]
  - Anxiety [Recovered/Resolved]
  - Tachycardia [Unknown]
  - Fear [Recovered/Resolved]
  - Malaise [Unknown]
  - Walking disability [Unknown]
  - Anxiety [Unknown]
  - Blood bilirubin increased [Unknown]
  - Nausea [Unknown]
  - Product prescribing error [Unknown]

NARRATIVE: CASE EVENT DATE: 20200811
